FAERS Safety Report 19809850 (Version 1)
Quarter: 2021Q3

REPORT INFORMATION
  Report Type: Spontaneous
  Country: US (occurrence: US)
  Receive Date: 20210908
  Receipt Date: 20210908
  Transmission Date: 20211014
  Serious: No
  Sender: FDA-Public Use
  Company Number: US-ROCHE-2770494

PATIENT
  Sex: Female
  Weight: 76.27 kg

DRUGS (1)
  1. ALECENSA [Suspect]
     Active Substance: ALECTINIB HYDROCHLORIDE
     Indication: METASTASES TO CENTRAL NERVOUS SYSTEM
     Dosage: TAKE 4 CAPSULES BY MOUTH
     Route: 048
     Dates: start: 20190525

REACTIONS (4)
  - Memory impairment [Unknown]
  - Off label use [Unknown]
  - Weight decreased [Unknown]
  - Bone disorder [Unknown]
